FAERS Safety Report 5915962-0 (Version None)
Quarter: 2008Q4

REPORT INFORMATION
  Report Type: 
  Country: None (occurrence: None)
  Receive Date: 20081013
  Receipt Date: 20081006
  Transmission Date: 20090506
  Serious: Yes (Other)
  Sender: FDA-Public Use
  Company Number: GB-RANBAXY-2008RR-18482

PATIENT
  Age: 80 Year
  Sex: Male

DRUGS (5)
  1. CIPROFLOXACIN [Suspect]
     Indication: INFECTION
     Dosage: UNK
  2. LINEZOLID [Suspect]
     Indication: INFECTION
  3. MEROPENEM [Suspect]
     Indication: INFECTION
  4. PRISTINAMYCIN [Suspect]
     Indication: INFECTION
     Dosage: UNK
  5. VANCOMYCIN HYDROCHLORIDE [Suspect]
     Indication: INFECTION

REACTIONS (1)
  - MULTIPLE-DRUG RESISTANCE [None]
